FAERS Safety Report 18739016 (Version 1)
Quarter: 2021Q1

REPORT INFORMATION
  Report Type: Spontaneous
  Country: US (occurrence: US)
  Receive Date: 20210114
  Receipt Date: 20210114
  Transmission Date: 20210419
  Serious: Yes (Death, Hospitalization, Other)
  Sender: FDA-Public Use
  Company Number: US-APOTEX-2021AP000097

PATIENT
  Age: 17 Year
  Sex: Female

DRUGS (1)
  1. ACETAMINOPHEN. [Suspect]
     Active Substance: ACETAMINOPHEN
     Indication: PRODUCT USED FOR UNKNOWN INDICATION
     Dosage: UNK
     Route: 048

REACTIONS (12)
  - Nausea [Fatal]
  - Unresponsive to stimuli [Fatal]
  - Intentional overdose [Fatal]
  - Pupils unequal [Fatal]
  - Jaundice [Fatal]
  - Shock [Fatal]
  - Brain oedema [Fatal]
  - Vomiting [Fatal]
  - Intracranial pressure increased [Fatal]
  - Pupillary reflex impaired [Fatal]
  - Completed suicide [Fatal]
  - Sinus tachycardia [Fatal]

NARRATIVE: CASE EVENT DATE: 2019
